FAERS Safety Report 15003279 (Version 1)
Quarter: 2018Q2

REPORT INFORMATION
  Report Type: Report from Study
  Country: IL (occurrence: IL)
  Receive Date: 20180613
  Receipt Date: 20180613
  Transmission Date: 20180711
  Serious: Yes (Hospitalization)
  Sender: FDA-Public Use
  Company Number: PHHO2018IL007060

PATIENT
  Age: 31 Year
  Sex: Male
  Weight: 124 kg

DRUGS (2)
  1. AIN457 [Suspect]
     Active Substance: SECUKINUMAB
     Indication: PSORIATIC ARTHROPATHY
     Dosage: 150 MG, UNK
     Route: 058
     Dates: start: 20161211
  2. METHOTREXATE. [Concomitant]
     Active Substance: METHOTREXATE
     Indication: PROSTATIC SPECIFIC ANTIGEN
     Dosage: UNK
     Route: 065
     Dates: start: 201406

REACTIONS (2)
  - Diabetic foot [Recovering/Resolving]
  - Osteomyelitis acute [Recovering/Resolving]

NARRATIVE: CASE EVENT DATE: 20180516
